FAERS Safety Report 5187183-3 (Version None)
Quarter: 2006Q4

REPORT INFORMATION
  Report Type: 
  Country: None (occurrence: None)
  Receive Date: 20061214
  Receipt Date: 20061205
  Transmission Date: 20070319
  Serious: Yes (Hospitalization)
  Sender: FDA-Public Use
  Company Number: 2006150966

PATIENT
  Age: 69 Year
  Sex: Female
  Weight: 49.8 kg

DRUGS (3)
  1. AMLODIPINE [Suspect]
     Indication: HYPERTENSION
     Dosage: 2.5 MG (2.5 MG, DAILY), ORAL
     Route: 048
     Dates: start: 20060804, end: 20061006
  2. ASPIRIN [Concomitant]
  3. LIPITOR [Concomitant]

REACTIONS (1)
  - ATRIOVENTRICULAR BLOCK THIRD DEGREE [None]
